FAERS Safety Report 8911943 (Version 1)
Quarter: 2012Q4

REPORT INFORMATION
  Report Type: Report from Study
  Country: DE (occurrence: DE)
  Receive Date: 20121115
  Receipt Date: 20121115
  Transmission Date: 20130627
  Serious: Yes (Hospitalization)
  Sender: FDA-Public Use
  Company Number: DE-TEVA-368560GER

PATIENT
  Age: 69 Year
  Sex: Male
  Weight: 76 kg

DRUGS (25)
  1. DOXORUBICIN [Suspect]
     Indication: B-CELL LYMPHOMA
     Route: 042
     Dates: start: 20120119
  2. DOXORUBICIN [Suspect]
     Indication: B-CELL LYMPHOMA
     Route: 042
     Dates: start: 20120119
  3. VINCRISTINE [Suspect]
     Indication: B-CELL LYMPHOMA
     Route: 042
     Dates: start: 20120119
  4. PREDNISONE [Suspect]
     Indication: B-CELL LYMPHOMA
     Route: 048
     Dates: start: 20120118
  5. OBINUTUZUMAB [Suspect]
     Indication: B-CELL LYMPHOMA
     Dosage: volume 250 ml, dose concentration 4 mg/ml
     Route: 042
     Dates: start: 20120118
  6. CYCLOPHOSPHAMIDE [Suspect]
     Indication: B-CELL LYMPHOMA
     Route: 042
     Dates: start: 20120119
  7. ORPHOL [Concomitant]
  8. OTRIVEN [Concomitant]
  9. ALLOPURINOL [Concomitant]
     Indication: AZOTAEMIA
     Dates: start: 20120109
  10. NEULASTA [Concomitant]
     Indication: NEUTROPENIA
     Dates: start: 20120510, end: 20120510
  11. TAVEGIL [Concomitant]
     Indication: HYPERSENSITIVITY
     Dates: start: 20120503, end: 20120503
  12. ZOFRAN [Concomitant]
     Indication: NAUSEA
     Dates: start: 20120504, end: 20120504
  13. ZOFRAN [Concomitant]
     Indication: VOMITING
  14. DEXAMETHASON [Concomitant]
     Indication: PAIN
     Dates: start: 20120504, end: 20120504
  15. FORTUM [Concomitant]
     Dates: start: 20120515, end: 20120524
  16. ROXIHEXAL [Concomitant]
     Dates: start: 20120516, end: 20120524
  17. PANTOZOL [Concomitant]
     Indication: GASTRODUODENAL ULCER
     Dates: start: 20120109
  18. TOREM [Concomitant]
     Indication: RENAL FAILURE
     Dates: start: 20120116
  19. KALINOR [Concomitant]
     Dates: start: 20120116
  20. CIPROBAY [Concomitant]
     Dates: start: 20120121
  21. COTRIM FORTE [Concomitant]
     Indication: URINARY TRACT INFECTION
     Dates: start: 20120121
  22. CEFTAZIDIME [Concomitant]
     Indication: URINARY TRACT INFECTION
     Dates: start: 20120423, end: 20120427
  23. CEFTAZIDIME [Concomitant]
     Indication: PYREXIA
     Dates: start: 20120515, end: 20120524
  24. CEFTAZIDIME [Concomitant]
     Indication: PNEUMONIA
  25. ACICLOVIR [Concomitant]
     Dates: start: 20120208

REACTIONS (4)
  - Febrile neutropenia [Recovered/Resolved]
  - Gastritis [Recovered/Resolved]
  - Anaemia [Not Recovered/Not Resolved]
  - Pneumonia [Recovered/Resolved]
